FAERS Safety Report 10168683 (Version 2)
Quarter: 2014Q4

REPORT INFORMATION
  Report Type: Spontaneous
  Country: US (occurrence: None)
  Receive Date: 20140509
  Receipt Date: 20141215
  Transmission Date: 20150528
  Serious: Yes (Life-Threatening, Other)
  Sender: FDA-Public Use
  Company Number: 2014AP002867

PATIENT
  Age: 65 Year
  Sex: Female
  Weight: 57 kg

DRUGS (9)
  1. MIDAZOLAM [Concomitant]
     Active Substance: MIDAZOLAM\MIDAZOLAM HYDROCHLORIDE
  2. ROCURONIUM BROMIDE (ROCURONIUM BROMIDE) [Concomitant]
  3. ASPIRIN (ACETYSALIC ACID) [Concomitant]
  4. PROPOFOL (PROPOFOL) [Concomitant]
     Active Substance: PROPOFOL
  5. BUPROPION (BUPROPION) [Concomitant]
     Active Substance: BUPROPION
  6. LISINOPRIL AND HYDROCHLOROTHIAZIDE [Suspect]
     Active Substance: HYDROCHLOROTHIAZIDE\LISINOPRIL
     Indication: HYPERTENSION
     Dosage: Q.AM
  7. PRAVASTATIN [Concomitant]
     Active Substance: PRAVASTATIN\PRAVASTATIN SODIUM
  8. FENTANYL (FENTANYL) [Concomitant]
     Active Substance: FENTANYL
  9. CARVEDILOL (CARVEDILOL) [Concomitant]
     Active Substance: CARVEDILOL

REACTIONS (2)
  - Procedural hypotension [None]
  - Cardiac arrest [None]
